FAERS Safety Report 19953009 (Version 1)
Quarter: 2021Q4

REPORT INFORMATION
  Report Type: Spontaneous
  Country: IT (occurrence: IT)
  Receive Date: 20211014
  Receipt Date: 20211014
  Transmission Date: 20220303
  Serious: Yes (Other)
  Sender: FDA-Public Use
  Company Number: None

PATIENT
  Age: 67 Year
  Sex: Male

DRUGS (6)
  1. BEVACIZUMAB [Suspect]
     Active Substance: BEVACIZUMAB
     Indication: Colorectal cancer
     Route: 042
     Dates: start: 20210528, end: 20210913
  2. FLUOROURACIL [Concomitant]
     Active Substance: FLUOROURACIL
  3. DEXAMETHASONE [Concomitant]
     Active Substance: DEXAMETHASONE
  4. GRANISETRON [Concomitant]
     Active Substance: GRANISETRON
  5. APREPITANT [Concomitant]
     Active Substance: APREPITANT
  6. IRINOTECAN HYDROCHLORIDE [Concomitant]
     Active Substance: IRINOTECAN HYDROCHLORIDE

REACTIONS (2)
  - Venous thrombosis [Recovering/Resolving]
  - Thrombosis in device [Recovering/Resolving]

NARRATIVE: CASE EVENT DATE: 20210927
